FAERS Safety Report 6492502-1 (Version None)
Quarter: 2009Q4

REPORT INFORMATION
  Report Type: 
  Country: None (occurrence: None)
  Receive Date: 20091211
  Receipt Date: 20091211
  Transmission Date: 20100525
  Serious: Yes (Hospitalization, Disabling)
  Sender: FDA-Public Use
  Company Number: None

PATIENT
  Age: 83 Year
  Sex: Male
  Weight: 86.1834 kg

DRUGS (2)
  1. LEVAQUIN [Suspect]
     Indication: DIVERTICULITIS
     Dosage: 10 TABS - 250 MG 1 DAILY ORAL
     Route: 048
     Dates: start: 20091104, end: 20091113
  2. FLAGYL [Suspect]
     Indication: DIVERTICULITIS
     Dosage: 30 TABS 250MG 3 DAILY ORAL
     Route: 048
     Dates: start: 20091104, end: 20091113

REACTIONS (5)
  - ARTHRALGIA [None]
  - LIGAMENT PAIN [None]
  - MUSCULOSKELETAL PAIN [None]
  - OEDEMA PERIPHERAL [None]
  - PAIN IN EXTREMITY [None]
